FAERS Safety Report 22052847 (Version 2)
Quarter: 2023Q1

REPORT INFORMATION
  Report Type: Other
  Country: IR (occurrence: IR)
  Receive Date: 20230302
  Receipt Date: 20230324
  Transmission Date: 20230417
  Serious: Yes (Death, Other)
  Sender: FDA-Public Use
  Company Number: IR-CHIESI-2023CHF00919

PATIENT
  Age: 0 Year
  Sex: Male
  Weight: .98 kg

DRUGS (8)
  1. CUROSURF [Suspect]
     Active Substance: PORACTANT ALFA
     Indication: Neonatal respiratory distress syndrome
     Dosage: 2.5 MILLILITER, UNK
     Route: 007
     Dates: start: 20230213, end: 20230213
  2. CUROSURF [Suspect]
     Active Substance: PORACTANT ALFA
     Dosage: 1.2 MILLILITER, UNK
     Route: 007
     Dates: start: 20230213, end: 20230213
  3. CALCIUM GLUCONATE [Concomitant]
     Active Substance: CALCIUM GLUCONATE
     Indication: Product used for unknown indication
     Route: 065
  4. CAFFEINE [Concomitant]
     Active Substance: CAFFEINE
     Indication: Product used for unknown indication
     Route: 065
  5. AMIKACIN [Concomitant]
     Active Substance: AMIKACIN
     Indication: Product used for unknown indication
     Route: 065
  6. AMPICILLIN [Concomitant]
     Active Substance: AMPICILLIN
     Indication: Product used for unknown indication
     Route: 065
  7. INTRALIPID [Concomitant]
     Active Substance: EGG PHOSPHOLIPIDS\GLYCERIN\SOYBEAN OIL
     Indication: Product used for unknown indication
     Route: 065
  8. AMINO ACIDS, SOURCE UNSPECIFIED [Concomitant]
     Active Substance: AMINO ACIDS, SOURCE UNSPECIFIED
     Indication: Product used for unknown indication
     Route: 065

REACTIONS (6)
  - Premature baby death [Fatal]
  - Pulmonary haemorrhage [Unknown]
  - Oxygen saturation decreased [Unknown]
  - Intraventricular haemorrhage [Unknown]
  - Hydrocephalus [Unknown]
  - Product quality issue [Recovered/Resolved]

NARRATIVE: CASE EVENT DATE: 20230214
